FAERS Safety Report 17141069 (Version 2)
Quarter: 2020Q1

REPORT INFORMATION
  Report Type: Spontaneous
  Country: US (occurrence: US)
  Receive Date: 20191211
  Receipt Date: 20200106
  Transmission Date: 20200409
  Serious: No
  Sender: FDA-Public Use
  Company Number: US-PFIZER INC-2019532820

PATIENT
  Age: 66 Year
  Sex: Female
  Weight: 82.55 kg

DRUGS (1)
  1. EUCRISA [Suspect]
     Active Substance: CRISABOROLE
     Indication: RASH
     Dosage: UNK, 2 TIMES PER DAY AND RUB IT IN ON THE AFFECTED AREAS

REACTIONS (3)
  - Sensitivity to weather change [Unknown]
  - Drug ineffective [Unknown]
  - Rash [Unknown]

NARRATIVE: CASE EVENT DATE: 20191206
